FAERS Safety Report 18958806 (Version 1)
Quarter: 2021Q1

REPORT INFORMATION
  Report Type: Spontaneous
  Country: FR (occurrence: FR)
  Receive Date: 20210302
  Receipt Date: 20210302
  Transmission Date: 20210420
  Serious: Yes (Other)
  Sender: FDA-Public Use
  Company Number: FR-PURDUE-USA-2021-0220447

PATIENT
  Age: 74 Year
  Sex: Female
  Weight: 44.1 kg

DRUGS (1)
  1. OXYNORM [Suspect]
     Active Substance: OXYCODONE HYDROCHLORIDE
     Indication: ANALGESIC INTERVENTION SUPPORTIVE THERAPY
     Dosage: UNK
     Route: 041
     Dates: start: 20210201, end: 20210201

REACTIONS (5)
  - Vomiting [Recovered/Resolved]
  - Product prescribing error [Recovered/Resolved]
  - Hyperhidrosis [Recovered/Resolved]
  - Overdose [Recovered/Resolved]
  - Bradypnoea [Recovered/Resolved]

NARRATIVE: CASE EVENT DATE: 20210201
